FAERS Safety Report 13760297 (Version 3)
Quarter: 2017Q3

REPORT INFORMATION
  Report Type: Report from Study
  Country: BR (occurrence: BR)
  Receive Date: 20170717
  Receipt Date: 20170731
  Transmission Date: 20171127
  Serious: Yes (Hospitalization)
  Sender: FDA-Public Use
  Company Number: ALCN2017BR004402

PATIENT
  Sex: Female
  Weight: 105 kg

DRUGS (3)
  1. DUOTRAVATAN [BAC] [Suspect]
     Active Substance: TIMOLOL MALEATE\TRAVOPROST
     Indication: GLAUCOMA
     Dosage: 1 DRP, QD (ONE DROP AT NIGHT)
     Route: 047
  2. LOSARTAN POTASSIUM. [Concomitant]
     Active Substance: LOSARTAN POTASSIUM
     Indication: HYPERTENSION
     Dosage: 25 MG, UNK
     Route: 048
  3. TRAVATAN [Suspect]
     Active Substance: TRAVOPROST
     Indication: PRODUCT USED FOR UNKNOWN INDICATION
     Dosage: UNK
     Route: 065

REACTIONS (12)
  - Visual impairment [Unknown]
  - Eye irritation [Recovered/Resolved]
  - Weight increased [Unknown]
  - Wrong drug administered [Unknown]
  - Dyspnoea [Recovered/Resolved]
  - Lung disorder [Recovered/Resolved]
  - Concomitant disease aggravated [Recovered/Resolved]
  - Liquid product physical issue [Unknown]
  - Drug dispensing error [Unknown]
  - Bronchitis [Recovered/Resolved]
  - Gait disturbance [Recovered/Resolved]
  - Ocular discomfort [Recovered/Resolved]
